FAERS Safety Report 17190218 (Version 1)
Quarter: 2019Q4

REPORT INFORMATION
  Report Type: Spontaneous
  Country: US (occurrence: US)
  Receive Date: 20191223
  Receipt Date: 20191223
  Transmission Date: 20200122
  Serious: Yes (Death, Life-Threatening, Other)
  Sender: FDA-Public Use
  Company Number: US-BTG-201900265

PATIENT
  Age: 90 Year
  Sex: Female

DRUGS (2)
  1. DIGOXIN. [Suspect]
     Active Substance: DIGOXIN
     Indication: PRODUCT USED FOR UNKNOWN INDICATION
     Dosage: INTENTIONAL INGESTED 80 OF HER 1.25 MCG DIGOXIN TABLETS.
     Route: 048
  2. DIGIFAB [Suspect]
     Active Substance: OVINE DIGOXIN IMMUNE FAB
     Indication: TOXICITY TO VARIOUS AGENTS
     Dosage: ABOUT 2.5 H AFTER PRESENTATION SHE RECEIVED 16 VIALS OF DIGOXIN ANTIBODY FRAGMENTS
     Route: 065

REACTIONS (5)
  - Toxicity to various agents [Fatal]
  - Diarrhoea [Unknown]
  - Completed suicide [Fatal]
  - Cardiac arrest [Unknown]
  - Nausea [Unknown]
